FAERS Safety Report 23355615 (Version 1)
Quarter: 2024Q1

REPORT INFORMATION
  Report Type: Spontaneous
  Country: US (occurrence: US)
  Receive Date: 20240102
  Receipt Date: 20240102
  Transmission Date: 20240410
  Serious: No
  Sender: FDA-Public Use
  Company Number: US-BRISTOL-MYERS SQUIBB COMPANY-2023-189231

PATIENT
  Sex: Male

DRUGS (2)
  1. REVLIMID [Suspect]
     Active Substance: LENALIDOMIDE
     Indication: Plasma cell myeloma
     Dosage: FREQ : UNKNOWN (TWO DIFFERENT FREQUENCIES REPORTED, 21 DAY CYCLE VS. 28 DAY CYCLE. IT IS FOR 21DAYS
  2. REVLIMID [Suspect]
     Active Substance: LENALIDOMIDE

REACTIONS (2)
  - Product prescribing error [Unknown]
  - Circumstance or information capable of leading to medication error [Unknown]
